FAERS Safety Report 4286022-2 (Version None)
Quarter: 2004Q1

REPORT INFORMATION
  Report Type: 
  Country: None (occurrence: None)
  Receive Date: 20040114
  Receipt Date: 20021204
  Transmission Date: 20041129
  Serious: Yes (Death)
  Sender: FDA-Public Use
  Company Number: 327094

PATIENT
  Age: 59 Year
  Sex: Female

DRUGS (2)
  1. ROCEPHIN [Suspect]
     Indication: PNEUMONIA
  2. LEVAQUIN [Suspect]
     Indication: PNEUMONIA

REACTIONS (1)
  - HAEMOLYTIC ANAEMIA [None]
